FAERS Safety Report 9003770 (Version 1)
Quarter: 2013Q1

REPORT INFORMATION
  Report Type: Spontaneous
  Country: US (occurrence: US)
  Receive Date: 20130108
  Receipt Date: 20130108
  Transmission Date: 20140127
  Serious: No
  Sender: FDA-Public Use
  Company Number: US-GLAXOSMITHKLINE-A0975722A

PATIENT
  Age: 82 Year
  Sex: Male

DRUGS (12)
  1. LOVAZA [Suspect]
     Indication: BLOOD TRIGLYCERIDES INCREASED
     Dosage: 2CAP TWICE PER DAY
     Route: 048
     Dates: start: 20120229
  2. LOSARTAN [Concomitant]
  3. FINASTERIDE [Concomitant]
  4. AMLODIPINE BESYLATE [Concomitant]
  5. SERTRALINE [Concomitant]
  6. LEVOTHYROXINE [Concomitant]
  7. METOPROLOL TARTRATE [Concomitant]
  8. ZOLPIDEM TARTRATE [Concomitant]
  9. ASPIRIN [Concomitant]
  10. NIACIN [Concomitant]
  11. TRAVATAN [Concomitant]
  12. IPRATROPIUM BROMIDE [Concomitant]

REACTIONS (1)
  - Muscle spasms [Not Recovered/Not Resolved]
